FAERS Safety Report 7428372-4 (Version None)
Quarter: 2011Q2

REPORT INFORMATION
  Report Type: 
  Country: None (occurrence: None)
  Receive Date: 20110421
  Receipt Date: 20110418
  Transmission Date: 20111010
  Serious: Yes (Life-Threatening)
  Sender: FDA-Public Use
  Company Number: JP-SANOFI-AVENTIS-2011SA016239

PATIENT
  Age: 56 Year
  Sex: Male
  Weight: 64 kg

DRUGS (7)
  1. ALLEGRA [Suspect]
     Indication: ECZEMA
     Route: 048
     Dates: start: 20110203, end: 20110317
  2. UNIPHYL [Concomitant]
     Indication: ASTHMA
     Route: 048
     Dates: end: 20110321
  3. REBAMIPIDE [Concomitant]
     Indication: GASTRITIS
     Route: 048
     Dates: end: 20110321
  4. URSO 250 [Concomitant]
     Indication: HEPATITIS C
     Route: 048
     Dates: end: 20110321
  5. PEGASYS [Suspect]
     Indication: HEPATITIS C
     Route: 058
     Dates: start: 20100520, end: 20110310
  6. COPEGUS [Concomitant]
     Indication: HEPATITIS C
     Route: 048
     Dates: start: 20100520, end: 20110310
  7. RIBALL [Concomitant]
     Indication: HYPERURICAEMIA
     Route: 048
     Dates: end: 20110321

REACTIONS (2)
  - APLASIA PURE RED CELL [None]
  - ANAEMIA [None]
